FAERS Safety Report 23026210 (Version 1)
Quarter: 2023Q4

REPORT INFORMATION
  Report Type: Other
  Country: DE (occurrence: DE)
  Receive Date: 20231004
  Receipt Date: 20231004
  Transmission Date: 20240109
  Serious: Yes (Congenital Anomaly)
  Sender: FDA-Public Use
  Company Number: DE-MACLEODS PHARMACEUTICALS US LTD-MAC2023043599

PATIENT

DRUGS (5)
  1. ESCITALOPRAM [Suspect]
     Active Substance: ESCITALOPRAM OXALATE
     Indication: Product used for unknown indication
     Dosage: 5 MILLIGRAM, QD (EXPOSURE DURING 1 TRIMESTER, 0-40.3 GESTATIONAL WEEK)
     Route: 064
     Dates: start: 20220602, end: 20230312
  2. DIMENHYDRINATE [Suspect]
     Active Substance: DIMENHYDRINATE
     Indication: Product used for unknown indication
     Dosage: UNK (EXPOSURE DURING 3 TRIMESTER AT INTRAPARTUM)
     Route: 064
  3. VAXIGRIP [Suspect]
     Active Substance: INFLUENZA VIRUS VACCINE
     Indication: Product used for unknown indication
     Dosage: UNK (EXPOSURE DURING 2 TRIMESTER AT 16-17 GESTATIONAL WEEK)
     Route: 064
  4. FOSTER [Suspect]
     Active Substance: BECLOMETHASONE\FORMOTEROL
     Indication: Product used for unknown indication
     Dosage: UNK, QD (800/24 MICROGRAM, EXPOSURE DURING 1 TRIMESTER AT 0-40.3 GESTATIONAL WEEK)
     Route: 064
     Dates: start: 20220602, end: 20230312
  5. BOOSTRIX [Suspect]
     Active Substance: TETANUS TOXOID, REDUCED DIPHTHERIA TOXOID AND ACELLULAR PERTUSSIS VACCINE, ADSORBED ANTIGENS
     Indication: Product used for unknown indication
     Dosage: UNK (EXPOSURE DURING 3 TRIMESTER AT 29.5-29.5 GESTATIONAL WEEK)
     Route: 064
     Dates: start: 20221227, end: 20221227

REACTIONS (4)
  - Vesicoureteric reflux [Not Recovered/Not Resolved]
  - Congenital megaureter [Not Recovered/Not Resolved]
  - Bladder dilatation [Not Recovered/Not Resolved]
  - Foetal exposure during pregnancy [Unknown]
